FAERS Safety Report 8050687-X (Version None)
Quarter: 2012Q1

REPORT INFORMATION
  Report Type: 
  Country: None (occurrence: None)
  Receive Date: 20120117
  Receipt Date: 20120117
  Transmission Date: 20120608
  Serious: Yes (Life-Threatening, Hospitalization)
  Sender: FDA-Public Use
  Company Number: None

PATIENT
  Age: 45 Month
  Sex: Male
  Weight: 105 kg

DRUGS (1)
  1. MEFLOQUINE HYDROCHLORIDE [Suspect]
     Indication: OCCUPATIONAL PROBLEM ENVIRONMENTAL
     Dosage: 250MG
     Route: 048
     Dates: start: 20050925, end: 20060524

REACTIONS (25)
  - MUSCULOSKELETAL PAIN [None]
  - VISION BLURRED [None]
  - DIARRHOEA [None]
  - AGGRESSION [None]
  - TINNITUS [None]
  - DRY EYE [None]
  - VISUAL IMPAIRMENT [None]
  - DEAFNESS [None]
  - PARANOIA [None]
  - ANXIETY [None]
  - ABDOMINAL PAIN [None]
  - OEDEMA PERIPHERAL [None]
  - HEADACHE [None]
  - NAUSEA [None]
  - DEPRESSION [None]
  - SUICIDAL IDEATION [None]
  - PRURITUS [None]
  - MUSCLE SPASMS [None]
  - PARAESTHESIA [None]
  - PAIN IN EXTREMITY [None]
  - ASTHENIA [None]
  - ARTHRALGIA [None]
  - INSOMNIA [None]
  - MALAISE [None]
  - MOOD SWINGS [None]
